FAERS Safety Report 4602148-5 (Version None)
Quarter: 2005Q2

REPORT INFORMATION
  Report Type: 
  Country: None (occurrence: None)
  Receive Date: 20050215
  Receipt Date: 20040326
  Transmission Date: 20051028
  Serious: Yes (Hospitalization)
  Sender: FDA-Public Use
  Company Number: MC200400089

PATIENT
  Age: 67 Year
  Sex: Female
  Weight: 88 kg

DRUGS (5)
  1. ANGIOMAX [Suspect]
     Indication: ANTICOAGULANT THERAPY
     Dosage: 0.75 MG/KG, BOLUS, IV BOLUS
     Route: 040
     Dates: start: 20040325, end: 20040325
  2. ANGIOMAX [Suspect]
     Indication: CORONARY ANGIOPLASTY
     Dosage: 0.75 MG/KG, BOLUS, IV BOLUS
     Route: 040
     Dates: start: 20040325, end: 20040325
  3. ANGIOMAX [Concomitant]
     Dosage: 1.75 MG/KG,HR INF, IV HR INF, INTRAVENOUS
     Route: 042
  4. ASA (ACETYLSALICYCLIC ACID) [Concomitant]
  5. PLAVIX [Concomitant]

REACTIONS (3)
  - CATHETER SITE HAEMORRHAGE [None]
  - COAGULATION TIME ABNORMAL [None]
  - INJECTION SITE HAEMORRHAGE [None]
